FAERS Safety Report 6123485-1 (Version None)
Quarter: 2009Q1

REPORT INFORMATION
  Report Type: 
  Country: None (occurrence: None)
  Receive Date: 20090318
  Receipt Date: 20090316
  Transmission Date: 20090719
  Serious: Yes (Other)
  Sender: FDA-Public Use
  Company Number: TR-ROXANE LABORATORIES, INC.-2009-RO-00243RO

PATIENT
  Age: 6 Year
  Sex: Female

DRUGS (8)
  1. METHOTREXATE [Suspect]
     Indication: CHEMOTHERAPY
     Route: 037
  2. METHOTREXATE [Suspect]
     Route: 037
  3. VINCRISTINE [Suspect]
     Indication: CHEMOTHERAPY
  4. PREDNISOLONE [Suspect]
     Indication: CHEMOTHERAPY
  5. DAUNORUBICIN HCL [Suspect]
     Indication: CHEMOTHERAPY
  6. ELSPAR [Suspect]
     Indication: CHEMOTHERAPY
  7. CYTARABINE [Suspect]
     Indication: PROPHYLAXIS
  8. HALOPERIDOL [Concomitant]
     Indication: CHOREA
     Dosage: 2MG

REACTIONS (1)
  - CHOREA [None]
